FAERS Safety Report 16577763 (Version 1)
Quarter: 2019Q3

REPORT INFORMATION
  Report Type: Spontaneous
  Country: LU (occurrence: LU)
  Receive Date: 20190716
  Receipt Date: 20190716
  Transmission Date: 20191004
  Serious: Yes (Hospitalization)
  Sender: FDA-Public Use
  Company Number: LU-B.I. PHARMACEUTICALS,INC./RIDGEFIELD-2019-12-002188

PATIENT
  Age: 51 Year
  Sex: Female
  Weight: 57 kg

DRUGS (11)
  1. PROPOFOL FRESENIUS [Suspect]
     Active Substance: PROPOFOL
     Indication: GENERAL ANAESTHESIA
     Route: 042
     Dates: start: 20181002, end: 20181002
  2. ESMERON [Suspect]
     Active Substance: ROCURONIUM BROMIDE
     Indication: GENERAL ANAESTHESIA
     Route: 042
     Dates: start: 20181002, end: 20181002
  3. CATAPRESSAN [Suspect]
     Active Substance: CLONIDINE
     Indication: PERIOPERATIVE ANALGESIA
     Dosage: FORM STRENGTH: 0,15 MG/ML, SOLUTION INJECTABLE
     Route: 042
     Dates: start: 20181002, end: 20181002
  4. CLINDAMYCIN. [Suspect]
     Active Substance: CLINDAMYCIN
     Indication: ANTIBIOTIC PROPHYLAXIS
     Route: 042
     Dates: start: 20181002, end: 20181002
  5. NOVALGIN (METAMIZOLE SODIUM) [Suspect]
     Active Substance: METAMIZOLE SODIUM
     Indication: PERIOPERATIVE ANALGESIA
     Dosage: FORM STRENGTH: 2,5 G/5 ML
     Route: 042
     Dates: start: 20181002, end: 20181002
  6. XYLOCAINE [Suspect]
     Active Substance: LIDOCAINE HYDROCHLORIDE
     Indication: GENERAL ANAESTHESIA
     Dosage: FORM STRENGTH: 1 % SANS CONSERVATEUR, SOLUTION INJECTABLE
     Route: 042
     Dates: start: 20181002, end: 20181002
  7. SUFENTA [Suspect]
     Active Substance: SUFENTANIL CITRATE
     Indication: GENERAL ANAESTHESIA
     Route: 042
     Dates: start: 20181002, end: 20181002
  8. BETADINE [Suspect]
     Active Substance: POVIDONE-IODINE
     Indication: INFECTION PROPHYLAXIS
     Route: 065
     Dates: start: 20181002, end: 20181002
  9. BLEU PATENTE V [Suspect]
     Active Substance: PATENT BLUE V
     Indication: LYMPHATIC MAPPING
     Route: 065
     Dates: start: 20181002, end: 20181002
  10. PARACETAMOL B BRAUN [Suspect]
     Active Substance: ACETAMINOPHEN
     Indication: PERIOPERATIVE ANALGESIA
     Route: 042
     Dates: start: 20181002, end: 20181002
  11. TARADYL [Suspect]
     Active Substance: KETOROLAC TROMETHAMINE
     Indication: PERIOPERATIVE ANALGESIA
     Route: 042
     Dates: start: 20181002, end: 20181002

REACTIONS (1)
  - Anaphylactic reaction [Recovered/Resolved]

NARRATIVE: CASE EVENT DATE: 20181002
